FAERS Safety Report 25715807 (Version 1)
Quarter: 2025Q3

REPORT INFORMATION
  Report Type: Spontaneous
  Country: EU (occurrence: EU)
  Receive Date: 20250822
  Receipt Date: 20250822
  Transmission Date: 20251021
  Serious: Yes (Hospitalization)
  Sender: TEVA
  Company Number: None

PATIENT
  Age: 97 Year
  Sex: Female

DRUGS (2)
  1. MIRTAZAPINE [Suspect]
     Active Substance: MIRTAZAPINE
     Indication: Depression
     Route: 048
     Dates: start: 20250525, end: 20250529
  2. MIANSERIN [Suspect]
     Active Substance: MIANSERIN
     Indication: Depression
     Route: 048
     Dates: start: 20250502, end: 20250514

REACTIONS (1)
  - Normocytic anaemia [Unknown]

NARRATIVE: CASE EVENT DATE: 20250514
